FAERS Safety Report 22091306 (Version 1)
Quarter: 2023Q1

REPORT INFORMATION
  Report Type: Spontaneous
  Country: US (occurrence: US)
  Receive Date: 20230314
  Receipt Date: 20230314
  Transmission Date: 20230418
  Serious: No
  Sender: FDA-Public Use
  Company Number: US-JNJFOC-20230323921

PATIENT
  Age: 66 Year
  Sex: Female

DRUGS (3)
  1. TREMFYA [Suspect]
     Active Substance: GUSELKUMAB
     Indication: Psoriasis
     Route: 065
     Dates: start: 20221213
  2. TRAZODONE [Concomitant]
     Active Substance: TRAZODONE HYDROCHLORIDE
  3. RALOXIFENE [Concomitant]
     Active Substance: RALOXIFENE

REACTIONS (4)
  - Drug ineffective [Unknown]
  - Pruritus [Unknown]
  - Alopecia [Unknown]
  - Skin disorder [Unknown]
